FAERS Safety Report 20119867 (Version 3)
Quarter: 2022Q1

REPORT INFORMATION
  Report Type: Spontaneous
  Country: JP (occurrence: JP)
  Receive Date: 20211126
  Receipt Date: 20220128
  Transmission Date: 20220424
  Serious: Yes (Other)
  Sender: FDA-Public Use
  Company Number: JP-NOVARTISPH-NVSJ2021JP019374

PATIENT
  Age: 64 Year
  Sex: Male

DRUGS (12)
  1. CYCLOSPORINE [Suspect]
     Active Substance: CYCLOSPORINE
     Indication: Morphoea
     Dosage: 100 MG
     Route: 048
  2. CYCLOSPORINE [Suspect]
     Active Substance: CYCLOSPORINE
     Dosage: 50 MG
     Route: 048
  3. PREDNISOLONE [Suspect]
     Active Substance: PREDNISOLONE
     Indication: Morphoea
     Dosage: 30 MG
     Route: 048
  4. PREDNISOLONE [Suspect]
     Active Substance: PREDNISOLONE
     Dosage: 25 MG
     Route: 048
  5. PREDNISOLONE [Suspect]
     Active Substance: PREDNISOLONE
     Dosage: 20 MG
     Route: 048
  6. PREDNISOLONE [Suspect]
     Active Substance: PREDNISOLONE
     Dosage: 15 MG
     Route: 048
  7. PREDNISOLONE [Suspect]
     Active Substance: PREDNISOLONE
     Dosage: 10 MG
     Route: 048
  8. PREDNISOLONE [Suspect]
     Active Substance: PREDNISOLONE
     Dosage: 7.5 MG
     Route: 048
  9. PREDNISOLONE [Suspect]
     Active Substance: PREDNISOLONE
     Dosage: 5 MG
     Route: 048
  10. BETAMETHASONE DIPROPIONATE [Concomitant]
     Active Substance: BETAMETHASONE DIPROPIONATE
     Indication: Product used for unknown indication
     Dosage: UNK
     Route: 065
  11. CLOBETASOL [Concomitant]
     Active Substance: CLOBETASOL
     Indication: Product used for unknown indication
     Dosage: UNK
     Route: 065
  12. TRANILAST [Concomitant]
     Active Substance: TRANILAST
     Indication: Product used for unknown indication
     Dosage: UNK
     Route: 065

REACTIONS (3)
  - Diabetes mellitus [Unknown]
  - Blood pressure increased [Unknown]
  - Product use in unapproved indication [Unknown]
